FAERS Safety Report 13348815 (Version 2)
Quarter: 2018Q1

REPORT INFORMATION
  Report Type: Spontaneous
  Country: US (occurrence: US)
  Receive Date: 20170320
  Receipt Date: 20180320
  Transmission Date: 20180508
  Serious: No
  Sender: FDA-Public Use
  Company Number: US-TEVA-730769ACC

PATIENT
  Age: 64 Year
  Sex: Female

DRUGS (4)
  1. NORTRIPTYLINE [Interacting]
     Active Substance: NORTRIPTYLINE
     Dosage: 25 MILLIGRAM DAILY;
     Route: 065
     Dates: start: 201607
  2. NORTRIPTYLINE [Suspect]
     Active Substance: NORTRIPTYLINE
     Indication: ABDOMINAL PAIN UPPER
     Dosage: 50 MILLIGRAM DAILY;
     Route: 065
  3. XANAX [Concomitant]
     Active Substance: ALPRAZOLAM
  4. MYRBETRIQ [Interacting]
     Active Substance: MIRABEGRON
     Indication: BLADDER DISORDER
     Route: 048
     Dates: start: 20160823

REACTIONS (5)
  - Drug interaction [Unknown]
  - Tremor [Recovered/Resolved]
  - Dysstasia [Recovered/Resolved]
  - Palpitations [Recovered/Resolved]
  - Gastrointestinal disorder [Recovered/Resolved]

NARRATIVE: CASE EVENT DATE: 201607
